FAERS Safety Report 18119387 (Version 1)
Quarter: 2020Q3

REPORT INFORMATION
  Report Type: Spontaneous
  Country: AU (occurrence: AU)
  Receive Date: 20200806
  Receipt Date: 20200806
  Transmission Date: 20201103
  Serious: Yes (Hospitalization)
  Sender: FDA-Public Use
  Company Number: AU-PFIZER INC-2020293508

PATIENT
  Age: 23 Year
  Sex: Male

DRUGS (2)
  1. DIAZEPAM. [Suspect]
     Active Substance: DIAZEPAM
     Dosage: 5 MG
  2. XANAX [Suspect]
     Active Substance: ALPRAZOLAM
     Dosage: 2 MG

REACTIONS (3)
  - Loss of consciousness [Unknown]
  - Suspected counterfeit product [Unknown]
  - Somnolence [Unknown]

NARRATIVE: CASE EVENT DATE: 20200729
